FAERS Safety Report 5476158-2 (Version None)
Quarter: 2007Q4

REPORT INFORMATION
  Report Type: 
  Country: None (occurrence: None)
  Receive Date: 20071003
  Receipt Date: 20070926
  Transmission Date: 20080405
  Serious: Yes (Other)
  Sender: FDA-Public Use
  Company Number: GBWYE379726SEP07

PATIENT
  Sex: Female

DRUGS (2)
  1. EFFEXOR [Suspect]
     Dosage: UNKNOWN
     Route: 048
  2. EFFEXOR [Suspect]
     Dosage: 75MG, FREQUENCY UNKNOWN
     Route: 048
     Dates: start: 20070925

REACTIONS (2)
  - CONVULSION [None]
  - PANIC ATTACK [None]
